FAERS Safety Report 21584885 (Version 1)
Quarter: 2022Q4

REPORT INFORMATION
  Report Type: Report from Study
  Country: JP (occurrence: JP)
  Receive Date: 20221111
  Receipt Date: 20221111
  Transmission Date: 20230112
  Serious: Yes (Other)
  Sender: FDA-Public Use
  Company Number: JP-CELGENE-JPN-20201200435

PATIENT
  Age: 52 Year
  Sex: Female
  Weight: 68.9 kg

DRUGS (25)
  1. RITUXIMAB [Suspect]
     Active Substance: RITUXIMAB
     Indication: Diffuse large B-cell lymphoma
     Dosage: FREQUENCY TEXT: DAY 1
     Route: 042
     Dates: start: 20170821
  2. RITUXIMAB [Suspect]
     Active Substance: RITUXIMAB
     Dosage: FREQUENCY TEXT: DAY 1?FROM 18-MAY-2020 TO 06-JUL-2020
     Route: 042
     Dates: start: 20200518
  3. RITUXIMAB [Suspect]
     Active Substance: RITUXIMAB
     Dosage: FREQUENCY TEXT: DAY 1
     Route: 042
     Dates: start: 20200730
  4. RITUXIMAB [Suspect]
     Active Substance: RITUXIMAB
     Dosage: FREQUENCY TEXT: DAY 1?25-APR-2017 TO 2017
     Route: 042
     Dates: start: 20170425
  5. CYCLOPHOSPHAMIDE [Suspect]
     Active Substance: CYCLOPHOSPHAMIDE
     Indication: Diffuse large B-cell lymphoma
     Dosage: FREQUENCY: DAY 1
     Route: 042
     Dates: start: 20170822
  6. CYCLOPHOSPHAMIDE [Suspect]
     Active Substance: CYCLOPHOSPHAMIDE
     Dosage: FREQUENCY: DAY 1?26-APR-2017 TO 2017
     Route: 042
     Dates: start: 20170426
  7. DOXORUBICIN [Suspect]
     Active Substance: DOXORUBICIN
     Indication: Diffuse large B-cell lymphoma
     Dosage: FREQUENCY: DAY 1
     Route: 042
     Dates: start: 20170822
  8. DOXORUBICIN [Suspect]
     Active Substance: DOXORUBICIN
     Dosage: FREQUENCY: DAY 1?26-APR-2017 TO 2017
     Route: 042
     Dates: start: 20170426
  9. VINCRISTINE [Suspect]
     Active Substance: VINCRISTINE
     Indication: Diffuse large B-cell lymphoma
     Dosage: FREQUENCY: DAY1
     Route: 042
     Dates: start: 20170822
  10. VINCRISTINE [Suspect]
     Active Substance: VINCRISTINE
     Dosage: FREQUENCY: DAY1?26-APR-2017 TO 2017
     Route: 042
     Dates: start: 20170426
  11. PREDNISONE [Suspect]
     Active Substance: PREDNISONE
     Indication: Diffuse large B-cell lymphoma
     Dosage: FROM 26-APR-2017 TO 2017?FREQUENCY TEXT: DAY 1 TO DAY 5 OF EACH 21 DAY
     Route: 048
     Dates: start: 20170426
  12. PREDNISONE [Suspect]
     Active Substance: PREDNISONE
     Dosage: FROM 22-AUG-2017 TO 26-AUG-2017?FREQUENCY TEXT: DAY 1 TO DAY 5 OF EACH 21 DAY
     Route: 048
     Dates: start: 20170822
  13. IFOSFAMIDE [Concomitant]
     Active Substance: IFOSFAMIDE
     Indication: Diffuse large B-cell lymphoma
     Dosage: FREQUENCY TEXT: UNKNOWN?13-JUN-2019 TO --2019
     Route: 065
     Dates: start: 20190613
  14. IFOSFAMIDE [Concomitant]
     Active Substance: IFOSFAMIDE
     Dosage: FREQUENCY TEXT: UNKNOWN?UNKNOWN
     Route: 065
     Dates: start: 20200518, end: 20200706
  15. IFOSFAMIDE [Concomitant]
     Active Substance: IFOSFAMIDE
     Dosage: FREQUENCY TEXT: UNKNOWN?UNKNOWN
     Route: 065
     Dates: start: 20200730, end: 20200730
  16. CISPLATIN [Concomitant]
     Active Substance: CISPLATIN
     Indication: Diffuse large B-cell lymphoma
     Dosage: 13-JUN-2019 TO --2019
     Route: 065
     Dates: start: 20190613
  17. ETOPOSIDE [Concomitant]
     Active Substance: ETOPOSIDE
     Indication: Diffuse large B-cell lymphoma
     Dosage: 13-JUN-2019 TO --2019
     Route: 065
     Dates: start: 20190613
  18. ETOPOSIDE [Concomitant]
     Active Substance: ETOPOSIDE
     Dosage: FREQUENCY TEXT: UNKNOWN?UNKNOWN
     Route: 065
     Dates: start: 20200518, end: 20200706
  19. ETOPOSIDE [Concomitant]
     Active Substance: ETOPOSIDE
     Dosage: FREQUENCY TEXT: UNKNOWN?UNKNOWN
     Route: 065
     Dates: start: 20200730, end: 20200730
  20. METHOTREXATE [Concomitant]
     Active Substance: METHOTREXATE
     Indication: Diffuse large B-cell lymphoma
     Dosage: 11-MAY-2020 TO -MAY-2020
     Route: 065
     Dates: start: 20200511
  21. CYTARABINE [Concomitant]
     Active Substance: CYTARABINE
     Indication: Diffuse large B-cell lymphoma
     Dosage: FREQUENCY TEXT: UNKNOWN?UNKNOWN
     Route: 065
     Dates: start: 20200518, end: 20200706
  22. CARBOPLATIN [Concomitant]
     Active Substance: CARBOPLATIN
     Indication: Diffuse large B-cell lymphoma
     Dosage: FREQUENCY TEXT: UNKNOWN?UNKNOWN
     Route: 065
     Dates: start: 20200730, end: 20200730
  23. CARBOPLATIN [Concomitant]
     Active Substance: CARBOPLATIN
     Dosage: FOR 3 CYCLES AND MAINTAINED PARTIAL RESPONSE (MPR) (RESIDUAL IN THE UTERUS) WAS GAINED.
     Route: 065
     Dates: start: 20190613
  24. CARBOPLATIN [Concomitant]
     Active Substance: CARBOPLATIN
     Dosage: FREQUENCY TEXT: UNKNOWN?UNKNOWN
     Route: 065
     Dates: start: 20200730, end: 20200730
  25. CARBOPLATIN [Concomitant]
     Active Substance: CARBOPLATIN
     Dosage: FREQUENCY TEXT: UNKNOWN?UNKNOWN
     Route: 065
     Dates: start: 20200730, end: 20200730

REACTIONS (1)
  - Endometrial adenocarcinoma [Not Recovered/Not Resolved]

NARRATIVE: CASE EVENT DATE: 20201127
